FAERS Safety Report 9226224 (Version 3)
Quarter: 2013Q4

REPORT INFORMATION
  Report Type: Spontaneous
  Country: US (occurrence: US)
  Receive Date: 20130411
  Receipt Date: 20131122
  Transmission Date: 20140711
  Serious: Yes (Other)
  Sender: FDA-Public Use
  Company Number: US-PFIZER INC-2013114531

PATIENT
  Age: 39 Year
  Sex: Female
  Weight: 116 kg

DRUGS (16)
  1. LYRICA [Suspect]
     Indication: FIBROMYALGIA
     Dosage: 150 MG, 2X/DAY
     Route: 048
  2. EFFEXOR XR [Suspect]
     Indication: DEPRESSION
     Dosage: 150 MG, 1X/DAY
  3. CELEBREX [Suspect]
     Indication: ARTHRITIS
     Dosage: 200 MG, 2X/DAY
  4. LASIX [Concomitant]
     Dosage: 40 MG, 1X/DAY
  5. VITAMIN D [Concomitant]
     Dosage: 1000 IU, 2X/DAY
  6. KLONOPIN [Concomitant]
     Dosage: 1MG IN MORNING AND 2MG AT BEDTIME
  7. SYNTHROID [Concomitant]
     Indication: HYPOTHYROIDISM
     Dosage: 0.175 MG, 1X/DAY
  8. TRAZODONE [Concomitant]
     Dosage: 150 MG, 1X/DAY
  9. ZANAFLEX [Concomitant]
     Dosage: 4 MG, AS NEEDED
  10. MECLIZINE [Concomitant]
     Dosage: 25 MG, AS NEEDED
  11. MONTELUKAST [Concomitant]
     Dosage: 10 MG, 1X/DAY
  12. FIORINAL [Concomitant]
     Indication: PAIN
     Dosage: UNK, AS NEEDED
  13. ULTRAM [Concomitant]
     Indication: PAIN
     Dosage: 50 MG, AS NEEDED
  14. LORTAB [Concomitant]
     Indication: PAIN
     Dosage: UNK, AS NEEDED
  15. PROAIR HFA [Concomitant]
     Dosage: UNK, AS NEEDED
  16. INDERAL [Concomitant]
     Dosage: UNK

REACTIONS (2)
  - Vitamin D decreased [Unknown]
  - Uterine mass [Unknown]
